FAERS Safety Report 9953211 (Version 1)
Quarter: 2014Q1

REPORT INFORMATION
  Report Type: Spontaneous
  Country: US (occurrence: US)
  Receive Date: 20140304
  Receipt Date: 20140304
  Transmission Date: 20141002
  Serious: No
  Sender: FDA-Public Use
  Company Number: US-AMGEN-USASP2013072970

PATIENT
  Age: 44 Year
  Sex: Female

DRUGS (1)
  1. ENBREL [Suspect]
     Indication: PSORIATIC ARTHROPATHY
     Dosage: 50 MG, QWK
     Route: 065
     Dates: start: 20130724

REACTIONS (5)
  - Ear discomfort [Recovered/Resolved]
  - Mass [Not Recovered/Not Resolved]
  - Ear pain [Recovered/Resolved]
  - Pharyngitis [Not Recovered/Not Resolved]
  - Sinusitis [Recovered/Resolved]
